FAERS Safety Report 4367670-8 (Version None)
Quarter: 2004Q2

REPORT INFORMATION
  Report Type: 
  Country: None (occurrence: None)
  Receive Date: 20040601
  Receipt Date: 20031107
  Transmission Date: 20050107
  Serious: Yes (Other)
  Sender: FDA-Public Use
  Company Number: JP-GLAXOSMITHKLINE-B0314483A

PATIENT
  Age: 62 Year
  Sex: Female

DRUGS (5)
  1. ZANTAC [Suspect]
     Indication: PREMEDICATION
     Dosage: 50MG UNKNOWN
     Route: 042
     Dates: start: 20020701
  2. DOCETAXEL [Concomitant]
     Route: 065
     Dates: start: 20010101
  3. PACLITAXEL [Concomitant]
     Route: 042
     Dates: start: 20020701
  4. DIPHENHYDRAMINE HCL [Concomitant]
     Indication: PREMEDICATION
     Route: 048
     Dates: start: 20020701
  5. DEXAMETHASONE SODIUM PHOSPHATE [Concomitant]
     Indication: PREMEDICATION
     Route: 042
     Dates: start: 20020701, end: 20020701

REACTIONS (1)
  - ANAPHYLACTOID REACTION [None]
